FAERS Safety Report 5508144-8 (Version None)
Quarter: 2007Q4

REPORT INFORMATION
  Report Type: 
  Country: None (occurrence: None)
  Receive Date: 20071106
  Receipt Date: 20071025
  Transmission Date: 20080405
  Serious: Yes (Hospitalization)
  Sender: FDA-Public Use
  Company Number: JP-PFIZER INC-2007082326

PATIENT
  Sex: Female

DRUGS (24)
  1. LIPITOR [Suspect]
     Indication: HYPERLIPIDAEMIA
     Route: 048
     Dates: start: 19970101, end: 20070908
  2. ZYPREXA [Suspect]
     Indication: DEPRESSION
     Route: 048
     Dates: start: 20070129, end: 20070908
  3. PASIL [Suspect]
     Indication: SYSTEMIC MYCOSIS
     Dates: start: 20070909, end: 20070910
  4. PASIL [Suspect]
     Indication: PYREXIA
  5. VFEND [Suspect]
     Indication: SYSTEMIC MYCOSIS
     Route: 048
     Dates: start: 20070829, end: 20070904
  6. VFEND [Suspect]
     Indication: PYREXIA
  7. VFEND [Suspect]
     Dates: start: 20070909, end: 20070910
  8. VFEND [Suspect]
  9. MAXIPIME [Concomitant]
     Indication: SYSTEMIC MYCOSIS
     Dates: start: 20070908, end: 20070910
  10. MAXIPIME [Concomitant]
     Indication: PYREXIA
  11. MEROPEN [Concomitant]
     Indication: SYSTEMIC MYCOSIS
     Dates: start: 20070829, end: 20070829
  12. MEROPEN [Concomitant]
     Indication: PYREXIA
  13. URSO 250 [Concomitant]
     Indication: HEPATITIS C
     Route: 048
     Dates: start: 20040101, end: 20070908
  14. BAKTAR [Concomitant]
     Dosage: TEXT:2 DOSE FORM
     Route: 048
     Dates: start: 20061201, end: 20070909
  15. FLOMOX [Concomitant]
     Indication: SYSTEMIC MYCOSIS
     Route: 048
     Dates: start: 20070829, end: 20070904
  16. FLOMOX [Concomitant]
     Indication: PYREXIA
  17. LOXONIN [Concomitant]
     Indication: SYSTEMIC MYCOSIS
     Route: 048
     Dates: start: 20070829, end: 20070904
  18. LOXONIN [Concomitant]
     Indication: PYREXIA
  19. ASPARA-CA [Concomitant]
     Route: 048
     Dates: start: 20070517, end: 20070909
  20. CONIEL [Concomitant]
     Indication: HYPERTENSION
     Route: 048
     Dates: start: 19970101, end: 20070908
  21. FAMOTIDINE [Concomitant]
     Indication: GASTRIC ULCER
     Route: 048
     Dates: start: 20061130, end: 20070908
  22. MAGNESIUM OXIDE [Concomitant]
     Route: 048
     Dates: start: 20061204, end: 20070909
  23. NAPA [Concomitant]
     Indication: SYSTEMIC MYCOSIS
     Dosage: DAILY DOSE:.5GRAM-FREQ:DAILY
     Route: 048
     Dates: start: 20070908, end: 20070909
  24. NAPA [Concomitant]
     Indication: PYREXIA

REACTIONS (7)
  - DEPRESSED LEVEL OF CONSCIOUSNESS [None]
  - FAECAL INCONTINENCE [None]
  - FALL [None]
  - LYMPHOMA [None]
  - RECURRENT CANCER [None]
  - RENAL FAILURE ACUTE [None]
  - RHABDOMYOLYSIS [None]
